FAERS Safety Report 5517759-2 (Version None)
Quarter: 2007Q4

REPORT INFORMATION
  Report Type: 
  Country: None (occurrence: None)
  Receive Date: 20071113
  Receipt Date: 20071105
  Transmission Date: 20080405
  Serious: Yes (Death)
  Sender: FDA-Public Use
  Company Number: TAP2007Q01425

PATIENT
  Age: 78 Year
  Sex: Male
  Weight: 63.6 kg

DRUGS (14)
  1. LUPRON [Suspect]
     Indication: EXCESSIVE SEXUAL FANTASIES
     Dosage: 0.5 MG, 1 IN 1 D, SUBCUTANEOUS
     Route: 058
     Dates: start: 20070920, end: 20071015
  2. PAXIL [Suspect]
     Indication: EXCESSIVE SEXUAL FANTASIES
     Dosage: 20 MG, 1 IN 1 D, PER ORAL
     Route: 048
     Dates: start: 20070920, end: 20071015
  3. PLAVIX [Concomitant]
  4. MULTIVITAMIN (MULTIVITAMIN) [Concomitant]
  5. NEXIUM [Concomitant]
  6. LOVASTATIN [Concomitant]
  7. OMEGA-3 FATTY ACIDS (OMEGA-3 FATTY ACIDS) [Concomitant]
  8. ENALAPRIL MALEATE [Concomitant]
  9. ASCORBIC ACID [Concomitant]
  10. ACETAMINOPHEN [Concomitant]
  11. MILK OF MAGNESIA TAB [Concomitant]
  12. DULCOLAX (DOCUSATE SODIUM) [Concomitant]
  13. FLEETS ENEMA (PARAFFIN, LIQUID) [Concomitant]
  14. INDERAL [Concomitant]

REACTIONS (10)
  - APNOEA [None]
  - CARDIAC ARREST [None]
  - CONTUSION [None]
  - FALL [None]
  - MUSCULAR WEAKNESS [None]
  - MYOCARDIAL INFARCTION [None]
  - PULSE ABSENT [None]
  - PYREXIA [None]
  - UNRESPONSIVE TO STIMULI [None]
  - URINARY TRACT INFECTION [None]
